FAERS Safety Report 9912492 (Version 1)
Quarter: 2014Q1

REPORT INFORMATION
  Report Type: Report from Study
  Country: TR (occurrence: TR)
  Receive Date: 20140220
  Receipt Date: 20140220
  Transmission Date: 20141002
  Serious: Yes (Hospitalization)
  Sender: FDA-Public Use
  Company Number: TR-BRISTOL-MYERS SQUIBB COMPANY-20195301

PATIENT
  Age: 64 Year
  Sex: Male

DRUGS (5)
  1. COUMADIN [Suspect]
     Indication: ATRIAL FIBRILLATION
  2. CARVEDILOL [Concomitant]
  3. LASIX [Concomitant]
  4. DILATREND [Concomitant]
     Indication: ATRIAL FIBRILLATION
     Dosage: 1 DF=25 UNITS NOS
  5. DIGOXIN [Concomitant]
     Indication: ATRIAL FIBRILLATION
     Dosage: 1DF-0.25 UNITS NOS

REACTIONS (1)
  - Myocardial infarction [Unknown]
